FAERS Safety Report 4730546-8 (Version None)
Quarter: 2005Q3

REPORT INFORMATION
  Report Type: 
  Country: None (occurrence: None)
  Receive Date: 20050725
  Receipt Date: 20050210
  Transmission Date: 20060218
  Serious: No
  Sender: FDA-Public Use
  Company Number: USA050290534

PATIENT
  Age: 11 Year
  Sex: Male

DRUGS (3)
  1. STRATTERA [Suspect]
     Indication: ATTENTION DEFICIT/HYPERACTIVITY DISORDER
     Dosage: 25 MG
     Dates: start: 20040701
  2. LUVOX [Concomitant]
  3. CLONIDINE [Concomitant]

REACTIONS (4)
  - ANGER [None]
  - FATIGUE [None]
  - MOOD SWINGS [None]
  - WEIGHT INCREASED [None]
